FAERS Safety Report 8176225-9 (Version None)
Quarter: 2012Q1

REPORT INFORMATION
  Report Type: 
  Country: None (occurrence: None)
  Receive Date: 20120301
  Receipt Date: 20120221
  Transmission Date: 20120608
  Serious: Yes (Other)
  Sender: FDA-Public Use
  Company Number: US-JNJFOC-20111211152

PATIENT
  Sex: Male
  Weight: 119.7 kg

DRUGS (9)
  1. CALCIUM WITH VITAMIN  D [Concomitant]
     Route: 065
  2. ASPIRIN [Concomitant]
     Route: 065
  3. MESALAMINE [Concomitant]
     Dosage: 4 TABLETS DAILY
     Route: 065
  4. MUCINEX D [Concomitant]
     Route: 065
  5. REMICADE [Suspect]
     Indication: COLITIS ULCERATIVE
     Route: 042
  6. IMURAN [Concomitant]
     Route: 065
  7. METFORMIN HCL [Concomitant]
     Route: 065
  8. PAXIL [Concomitant]
     Route: 065
  9. ZOCOR [Concomitant]
     Route: 065

REACTIONS (1)
  - HERPES ZOSTER [None]
